FAERS Safety Report 5276572-4 (Version None)
Quarter: 2007Q1

REPORT INFORMATION
  Report Type: 
  Country: None (occurrence: None)
  Receive Date: 20070327
  Receipt Date: 20070315
  Transmission Date: 20070707
  Serious: Yes (Hospitalization, Other)
  Sender: FDA-Public Use
  Company Number: PT-JNJFOC-20070203274

PATIENT
  Sex: Female
  Weight: 90 kg

DRUGS (9)
  1. REMICADE [Suspect]
     Indication: PSORIASIS
     Route: 042
  2. AAS [Concomitant]
  3. DINITRATE ISORBIDE [Concomitant]
  4. FENOFIBRATE [Concomitant]
  5. LORAZEPAM [Concomitant]
  6. GLIBENCLAMIDE [Concomitant]
  7. UNSPECIFIED MEDICATION [Concomitant]
  8. AMITRIPTYLINE HCL [Concomitant]
  9. DILTIAZEM [Concomitant]

REACTIONS (4)
  - NOSOCOMIAL INFECTION [None]
  - TONSILLITIS [None]
  - TUBERCULOSIS [None]
  - URINARY TRACT INFECTION [None]
